FAERS Safety Report 5167718-7 (Version None)
Quarter: 2006Q4

REPORT INFORMATION
  Report Type: 
  Country: None (occurrence: None)
  Receive Date: 20061204
  Receipt Date: 20061204
  Transmission Date: 20070319
  Serious: Yes (Hospitalization)
  Sender: FDA-Public Use
  Company Number: None

PATIENT
  Age: 53 Year
  Sex: Male

DRUGS (5)
  1. DILANTIN [Suspect]
     Indication: CONVULSION
     Dosage: 200 MG  BID  PO
     Route: 048
  2. TRILEPTAL [Suspect]
     Indication: CONVULSION
     Dosage: UNKNOWN    PO
     Route: 048
  3. ACCUPRIL [Concomitant]
  4. TOPROL-XL [Concomitant]
  5. COUMADIN [Concomitant]

REACTIONS (2)
  - DRUG INTERACTION [None]
  - HYPONATRAEMIA [None]
